FAERS Safety Report 5411668-5 (Version None)
Quarter: 2007Q3

REPORT INFORMATION
  Report Type: 
  Country: None (occurrence: None)
  Receive Date: 20070810
  Receipt Date: 20070809
  Transmission Date: 20080115
  Serious: Yes (Other)
  Sender: FDA-Public Use
  Company Number: DE-MERCK-0708DEU00017

PATIENT
  Age: 75 Year
  Sex: Male

DRUGS (1)
  1. VYTORIN [Suspect]
     Route: 048
     Dates: start: 20040101

REACTIONS (1)
  - INTESTINAL OBSTRUCTION [None]
